FAERS Safety Report 8469588 (Version 8)
Quarter: 2014Q2

REPORT INFORMATION
  Report Type: Spontaneous
  Country: US (occurrence: None)
  Receive Date: 20120315
  Receipt Date: 20140609
  Transmission Date: 20141212
  Serious: Yes (Death, Hospitalization, Other)
  Sender: FDA-Public Use
  Company Number: 2012SGN00092

PATIENT
  Age: 72 Year
  Sex: Female

DRUGS (4)
  1. ADCETRIS [Suspect]
     Indication: MYCOSIS FUNGOIDES
     Route: 042
     Dates: start: 20111223, end: 20120208
  2. ADCETRIS [Suspect]
     Route: 042
     Dates: start: 20111223, end: 20120208
  3. PREDNISONE (PREDNISONE ACETATE) [Concomitant]
  4. BENZODIAZEPINE DERIVATIVES [Concomitant]

REACTIONS (12)
  - Confusional state [None]
  - Nuclear magnetic resonance imaging brain abnormal [None]
  - Progressive multifocal leukoencephalopathy [None]
  - Mental status changes [None]
  - Lymphopenia [None]
  - Anaemia [None]
  - Mycosis fungoides [None]
  - Malignant neoplasm progression [None]
  - Confabulation [None]
  - Affect lability [None]
  - Memory impairment [None]
  - Failure to thrive [None]
